FAERS Safety Report 11599604 (Version 1)
Quarter: 2015Q3

REPORT INFORMATION
  Report Type: Spontaneous
  Country: US (occurrence: US)
  Receive Date: 20150916
  Receipt Date: 20150916
  Transmission Date: 20151125
  Serious: No
  Sender: FDA-Public Use
  Company Number: US-ELI_LILLY_AND_COMPANY-US200710001245

PATIENT
  Age: 85 Year
  Sex: Female

DRUGS (1)
  1. FORTEO [Suspect]
     Active Substance: TERIPARATIDE
     Indication: OSTEOPOROSIS
     Dates: start: 20060102, end: 20061016

REACTIONS (4)
  - Activities of daily living impaired [Not Recovered/Not Resolved]
  - Back pain [Not Recovered/Not Resolved]
  - Arthritis [Not Recovered/Not Resolved]
  - Feeling of despair [Not Recovered/Not Resolved]

NARRATIVE: CASE EVENT DATE: 200602
